FAERS Safety Report 18294133 (Version 1)
Quarter: 2020Q3

REPORT INFORMATION
  Report Type: Report from Study
  Country: CN (occurrence: CN)
  Receive Date: 20200922
  Receipt Date: 20200922
  Transmission Date: 20201103
  Serious: Yes (Other)
  Sender: FDA-Public Use
  Company Number: CN-TEVA-2020-CN-1829622

PATIENT
  Age: 17 Month

DRUGS (19)
  1. CICLOSPORIN?A [Suspect]
     Active Substance: CYCLOSPORINE
     Indication: HAEMOPHAGOCYTIC LYMPHOHISTIOCYTOSIS
     Dosage: AS A PART OF HLH?2004 PROTOCOL FOR 8 MONTHS
     Route: 065
  2. METHOTREXATE. [Suspect]
     Active Substance: METHOTREXATE
     Indication: PROPHYLAXIS AGAINST GRAFT VERSUS HOST DISEASE
     Dosage: ON DAY +1 FOR GVHD PROPHYLAXIS
     Route: 042
  3. FK506 [Suspect]
     Active Substance: TACROLIMUS
     Indication: GRAFT VERSUS HOST DISEASE
     Route: 065
  4. CICLOSPORIN?A [Suspect]
     Active Substance: CYCLOSPORINE
     Indication: PROPHYLAXIS AGAINST GRAFT VERSUS HOST DISEASE
  5. METHOTREXATE. [Suspect]
     Active Substance: METHOTREXATE
     Dosage: ON DAYS +3, +6 AND +11 FOR GVHD PROPHYLAXIS
     Route: 042
  6. CYCLOPHOSPHAMIDE. [Suspect]
     Active Substance: CYCLOPHOSPHAMIDE
     Indication: BONE MARROW CONDITIONING REGIMEN
     Route: 065
  7. PREDNISOLONE. [Suspect]
     Active Substance: PREDNISOLONE
     Indication: HAEMOPHAGOCYTIC LYMPHOHISTIOCYTOSIS
     Dosage: AS A PART OF HLH?2004 PROTOCOL FOR 8 MONTHS
     Route: 065
  8. DEXAMETHASONE. [Suspect]
     Active Substance: DEXAMETHASONE
     Indication: HAEMOPHAGOCYTIC LYMPHOHISTIOCYTOSIS
     Dosage: AS A PART OF HLH?2004 PROTOCOL FOR 8 MONTHS
     Route: 065
  9. METHOTREXATE. [Suspect]
     Active Substance: METHOTREXATE
     Indication: HAEMOPHAGOCYTIC LYMPHOHISTIOCYTOSIS
     Dosage: AS A PART OF HLH?2004 PROTOCOL FOR 8 MONTHS FOR HAEMOPHAGOCYTIC LYMPHOHISTIOCYTOSIS
     Route: 065
  10. METHYLPREDNISOLONE. [Suspect]
     Active Substance: METHYLPREDNISOLONE
     Indication: GRAFT VERSUS HOST DISEASE
  11. CICLOSPORIN?A [Suspect]
     Active Substance: CYCLOSPORINE
     Indication: HAEMOPHAGOCYTIC LYMPHOHISTIOCYTOSIS
     Dosage: 5 MG/KG DAILY; FROM DAY ?1 FOR GRAFT VERSUS HOST DISEASE PROPHYLAXIS
     Route: 042
  12. ETOPOSIDE. [Suspect]
     Active Substance: ETOPOSIDE
     Indication: HAEMOPHAGOCYTIC LYMPHOHISTIOCYTOSIS
     Dosage: AS A PART OF HLH?2004 PROTOCOL FOR 8 MONTHS
     Route: 065
  13. FLUDARABINE [Suspect]
     Active Substance: FLUDARABINE PHOSPHATE
     Indication: BONE MARROW CONDITIONING REGIMEN
     Route: 065
  14. ANTITHYMOCYTE GLOBULIN [Suspect]
     Active Substance: THYMOCYTE IMMUNE GLOBULIN NOS
     Indication: BONE MARROW CONDITIONING REGIMEN
     Route: 065
  15. BUSULFAN. [Suspect]
     Active Substance: BUSULFAN
     Indication: BONE MARROW CONDITIONING REGIMEN
     Dosage: FOR 2 DAY
     Route: 065
  16. METHYLPREDNISOLONE. [Suspect]
     Active Substance: METHYLPREDNISOLONE
     Indication: HAEMOPHAGOCYTIC LYMPHOHISTIOCYTOSIS
     Route: 065
  17. MYCOPHENOLATE MOFETIL. [Suspect]
     Active Substance: MYCOPHENOLATE MOFETIL
     Indication: PROPHYLAXIS AGAINST GRAFT VERSUS HOST DISEASE
     Dosage: 1200 MG/M2 DAILY; FROM DAY +1
     Route: 048
  18. DACLIZUMAB [Suspect]
     Active Substance: DACLIZUMAB
     Indication: GRAFT VERSUS HOST DISEASE
     Dosage: 2 DOSES
     Route: 065
  19. CICLOSPORIN?A [Suspect]
     Active Substance: CYCLOSPORINE
     Indication: PROPHYLAXIS AGAINST GRAFT VERSUS HOST DISEASE

REACTIONS (4)
  - Graft versus host disease in skin [Unknown]
  - Rebound effect [Unknown]
  - Cytomegalovirus viraemia [Unknown]
  - Herpes virus infection [Unknown]
